FAERS Safety Report 12617428 (Version 1)
Quarter: 2016Q3

REPORT INFORMATION
  Report Type: Spontaneous
  Country: US (occurrence: None)
  Receive Date: 20160802
  Receipt Date: 20160802
  Transmission Date: 20161109
  Serious: No
  Sender: FDA-Public Use
  Company Number: None

PATIENT

DRUGS (2)
  1. METOCLOPRAMIDE TEVA [Suspect]
     Active Substance: METOCLOPRAMIDE
     Dosage: IM OR IV  SINGLE ISE VIAL 25 X 2 ML
     Route: 030
  2. AMIKACIN SULFATE TEVA [Suspect]
     Active Substance: AMIKACIN SULFATE
     Dosage: IM OR IV  SINGLE DOSEVIAL
     Route: 030

REACTIONS (2)
  - Circumstance or information capable of leading to medication error [None]
  - Product physical issue [None]
